FAERS Safety Report 9222139 (Version 2)
Quarter: 2013Q3

REPORT INFORMATION
  Report Type: Spontaneous
  Country: US (occurrence: None)
  Receive Date: 20130408
  Receipt Date: 20130716
  Transmission Date: 20140515
  Serious: Yes (Hospitalization, Other)
  Sender: FDA-Public Use
  Company Number: 2013P1004266

PATIENT
  Age: 52 Year
  Sex: Female

DRUGS (3)
  1. HYDROMORPHONE [Suspect]
     Indication: ARTHRALGIA
     Dosage: 8 MG;Q2H PRN;IV
     Route: 042
     Dates: start: 2009
  2. HYDROMORPHONE [Suspect]
     Indication: VENOUS INSUFFICIENCY
     Dosage: 8 MG;Q2H PRN;IV
     Route: 042
     Dates: start: 2009
  3. DIPHENHYDRAMINE [Suspect]
     Indication: ADVERSE EVENT

REACTIONS (16)
  - Rash [None]
  - Oedema [None]
  - Nail discolouration [None]
  - Burning sensation [None]
  - Cyanosis [None]
  - Rash [None]
  - Local swelling [None]
  - Eye irritation [None]
  - Erythema [None]
  - Erythema [None]
  - Dizziness [None]
  - Malaise [None]
  - Headache [None]
  - Product deposit [None]
  - Hospitalisation [None]
  - Product quality issue [None]
